FAERS Safety Report 9991022 (Version 1)
Quarter: 2014Q1

REPORT INFORMATION
  Report Type: Report from Study
  Country: US (occurrence: US)
  Receive Date: 20140310
  Receipt Date: 20140310
  Transmission Date: 20141002
  Serious: No
  Sender: FDA-Public Use
  Company Number: US-ABBVIE-13P-163-1131744-00

PATIENT
  Age: 46 Year
  Sex: Female

DRUGS (6)
  1. HUMIRA [Suspect]
     Indication: COLITIS ULCERATIVE
     Dates: start: 20130607, end: 20130724
  2. AVANDIA [Concomitant]
     Indication: BLOOD GLUCOSE INCREASED
     Dosage: 4MG DAILY
  3. ONGLYZA [Concomitant]
     Indication: BLOOD GLUCOSE INCREASED
     Dosage: 5MG DAILY
  4. ATORVASTATIN [Concomitant]
     Indication: BLOOD CHOLESTEROL INCREASED
     Dosage: 40MG DAILY
  5. IMURAN [Concomitant]
     Indication: COLITIS ULCERATIVE
  6. IMURAN [Concomitant]

REACTIONS (1)
  - Drug ineffective [Recovering/Resolving]
